FAERS Safety Report 24292006 (Version 1)
Quarter: 2024Q3

REPORT INFORMATION
  Report Type: Report from Study
  Country: US (occurrence: None)
  Receive Date: 20240906
  Receipt Date: 20240906
  Transmission Date: 20241017
  Serious: Yes (Hospitalization, Other)
  Sender: ASTRAZENECA
  Company Number: 2024A200838

PATIENT
  Age: 700 Month
  Sex: Female

DRUGS (8)
  1. LYNPARZA [Suspect]
     Active Substance: OLAPARIB
     Indication: Pancreatic carcinoma
     Route: 048
     Dates: end: 202408
  2. LYNPARZA [Suspect]
     Active Substance: OLAPARIB
     Indication: Pancreatic carcinoma
     Route: 048
     Dates: start: 202407
  3. LYNPARZA [Suspect]
     Active Substance: OLAPARIB
     Indication: Pancreatic carcinoma
     Route: 048
     Dates: start: 202408
  4. CARBOPLATIN [Suspect]
     Active Substance: CARBOPLATIN
  5. GEMZAR [Concomitant]
     Active Substance: GEMCITABINE HYDROCHLORIDE
  6. NPLATE [Concomitant]
     Active Substance: ROMIPLOSTIM
  7. ELIQUIS [Concomitant]
     Active Substance: APIXABAN
  8. ABAXANE [Concomitant]

REACTIONS (7)
  - Full blood count abnormal [Unknown]
  - Pulmonary embolism [Unknown]
  - Jugular vein thrombosis [Unknown]
  - Red blood cell count decreased [Unknown]
  - White blood cell count decreased [Unknown]
  - Platelet count decreased [Unknown]
  - Underdose [Unknown]

NARRATIVE: CASE EVENT DATE: 20240801
